FAERS Safety Report 5994060-4 (Version None)
Quarter: 2008Q4

REPORT INFORMATION
  Report Type: 
  Country: None (occurrence: None)
  Receive Date: 20081212
  Receipt Date: 20080904
  Transmission Date: 20090506
  Serious: No
  Sender: FDA-Public Use
  Company Number: US-ABBOTT-08P-163-0473247-00

PATIENT
  Sex: Female
  Weight: 56.296 kg

DRUGS (4)
  1. HUMIRA [Suspect]
     Indication: RHEUMATOID ARTHRITIS
     Route: 058
     Dates: start: 20071001
  2. HYZAAR [Concomitant]
     Indication: BLOOD PRESSURE
     Dosage: 50/12.5MG DAILY
     Route: 048
     Dates: start: 20070401
  3. ESOMEPRAZOLE MAGNESIUM [Concomitant]
     Indication: GASTROOESOPHAGEAL REFLUX DISEASE
     Route: 048
     Dates: start: 20080101
  4. IBANDRONATE SODIUM [Concomitant]
     Indication: DRUG HYPERSENSITIVITY
     Route: 048
     Dates: start: 20080101

REACTIONS (3)
  - DRUG INEFFECTIVE [None]
  - PAIN [None]
  - RHEUMATOID ARTHRITIS [None]
